FAERS Safety Report 6779091-9 (Version None)
Quarter: 2010Q2

REPORT INFORMATION
  Report Type: 
  Country: None (occurrence: None)
  Receive Date: 20100618
  Receipt Date: 20100607
  Transmission Date: 20101027
  Serious: Yes (Disabling)
  Sender: FDA-Public Use
  Company Number: IT-ELI_LILLY_AND_COMPANY-IT201006002312

PATIENT
  Sex: Female
  Weight: 40.5 kg

DRUGS (2)
  1. GEMCITABINE HYDROCHLORIDE [Suspect]
     Indication: BREAST CANCER METASTATIC
     Dosage: 800 MG/M2, DAYS 1, 8 + 15 EVERY 28 DAYS
     Route: 042
     Dates: start: 20070612
  2. PACLITAXEL [Suspect]
     Indication: BREAST CANCER METASTATIC
     Dosage: 80 MG/M2, DAYS 1,8 + 15 EVERY 28 DAYS
     Route: 042
     Dates: start: 20070612

REACTIONS (1)
  - HYPERTENSION [None]
